FAERS Safety Report 21672680 (Version 3)
Quarter: 2024Q2

REPORT INFORMATION
  Report Type: Spontaneous
  Country: US (occurrence: US)
  Receive Date: 20221202
  Receipt Date: 20240610
  Transmission Date: 20240716
  Serious: Yes (Other)
  Sender: FDA-Public Use
  Company Number: US-ABBVIE-4221485

PATIENT
  Sex: Male

DRUGS (1)
  1. ANDROGEL [Suspect]
     Active Substance: TESTOSTERONE
     Indication: Product used for unknown indication
     Route: 061

REACTIONS (4)
  - Hormone replacement therapy [Unknown]
  - Hormone level abnormal [Unknown]
  - Therapeutic product effect incomplete [Recovered/Resolved]
  - Anxiety [Unknown]
